FAERS Safety Report 16942719 (Version 1)
Quarter: 2019Q4

REPORT INFORMATION
  Report Type: Spontaneous
  Country: US (occurrence: US)
  Receive Date: 20191021
  Receipt Date: 20191021
  Transmission Date: 20200122
  Serious: No
  Sender: FDA-Public Use
  Company Number: US-NEPHRON STERILE COMPOUNDING CENTER-2075882

PATIENT
  Age: 57 Year
  Sex: Male
  Weight: 86 kg

DRUGS (13)
  1. MANNITOL. [Concomitant]
     Active Substance: MANNITOL
  2. ROCURONIUM BROMIDE. [Suspect]
     Active Substance: ROCURONIUM BROMIDE
     Indication: ARTERIOVENOUS MALFORMATION
     Route: 040
     Dates: start: 20191010, end: 20191011
  3. PROPOFOL. [Concomitant]
     Active Substance: PROPOFOL
  4. ONDANSETRON [Concomitant]
     Active Substance: ONDANSETRON
  5. LIDOCAINE. [Concomitant]
     Active Substance: LIDOCAINE
  6. EPHEDRINE. [Concomitant]
     Active Substance: EPHEDRINE
  7. FENTANYL. [Concomitant]
     Active Substance: FENTANYL
  8. SUGAMMADEX [Concomitant]
     Active Substance: SUGAMMADEX
  9. NICARDIPINE HYDROCHLORIDE. [Concomitant]
     Active Substance: NICARDIPINE HYDROCHLORIDE
  10. CEFAZOLIN SODIUM. [Concomitant]
     Active Substance: CEFAZOLIN SODIUM
  11. PHENYLEPHRINE [Concomitant]
     Active Substance: PHENYLEPHRINE HYDROCHLORIDE
  12. DEXAMETHASONE. [Concomitant]
     Active Substance: DEXAMETHASONE
  13. MIDAZOLAM [Concomitant]
     Active Substance: MIDAZOLAM HYDROCHLORIDE

REACTIONS (1)
  - Drug ineffective [Recovered/Resolved]

NARRATIVE: CASE EVENT DATE: 20191011
